FAERS Safety Report 6219102-2 (Version None)
Quarter: 2009Q2

REPORT INFORMATION
  Report Type: 
  Country: None (occurrence: None)
  Receive Date: 20090609
  Receipt Date: 20090603
  Transmission Date: 20091009
  Serious: Yes (Hospitalization)
  Sender: FDA-Public Use
  Company Number: US-CELGENEUS-163-21880-09060241

PATIENT
  Sex: Male
  Weight: 66.8 kg

DRUGS (1)
  1. REVLIMID [Suspect]
     Route: 048
     Dates: start: 20081020, end: 20090526

REACTIONS (2)
  - NEUTROPENIA [None]
  - PARAINFLUENZAE VIRUS INFECTION [None]
